FAERS Safety Report 4468200-2 (Version None)
Quarter: 2004Q4

REPORT INFORMATION
  Report Type: 
  Country: None (occurrence: None)
  Receive Date: 20041007
  Receipt Date: 20041002
  Transmission Date: 20050328
  Serious: Yes (Death)
  Sender: FDA-Public Use
  Company Number: AU-MERCK-0410AUS00032

PATIENT
  Age: 77 Year
  Sex: Male

DRUGS (3)
  1. [COMPOSITION UNSPECIFIED] [Concomitant]
     Route: 065
  2. ZANTAC [Concomitant]
     Route: 065
  3. VIOXX [Suspect]
     Route: 048

REACTIONS (1)
  - MYOCARDIAL INFARCTION [None]
